FAERS Safety Report 8725225 (Version 2)
Quarter: 2012Q4

REPORT INFORMATION
  Report Type: 
  Country: FR (occurrence: FR)
  Receive Date: 20120815
  Receipt Date: 20120906
  Transmission Date: 20130627
  Serious: Yes (Hospitalization)
  Sender: FDA-Public Use
  Company Number: FR-ELI_LILLY_AND_COMPANY-FR201208001727

PATIENT
  Age: 65 Year
  Sex: Female

DRUGS (10)
  1. POLARAMINE [Concomitant]
     Dosage: UNK, unknown
  2. ALIMTA [Suspect]
     Indication: ADENOCARCINOMA
     Dosage: 744 mg, unknown
     Route: 042
     Dates: start: 20120629, end: 20120720
  3. AVASTIN [Concomitant]
     Dosage: 854 mg, unknown
     Dates: start: 20120629, end: 20120720
  4. RENITEC [Concomitant]
  5. ELISOR [Concomitant]
  6. DOLIPRANE [Concomitant]
  7. FOLIC ACID [Concomitant]
  8. B12-VITAMIIN [Concomitant]
  9. ZOPHREN [Concomitant]
     Dosage: UNK
     Dates: start: 20120720
  10. METHYLPREDNISOLONE [Concomitant]
     Dosage: UNK
     Dates: start: 20120720

REACTIONS (9)
  - Syncope [Recovered/Resolved]
  - Rash [Recovered/Resolved]
  - Conjunctival hyperaemia [Recovered/Resolved]
  - Dyspnoea [Recovered/Resolved]
  - Hyperhidrosis [Unknown]
  - Nausea [Recovered/Resolved]
  - Epigastric discomfort [Unknown]
  - Bronchospasm [Unknown]
  - Rash erythematous [Recovered/Resolved]
